FAERS Safety Report 5192501-6 (Version None)
Quarter: 2006Q4

REPORT INFORMATION
  Report Type: 
  Country: None (occurrence: None)
  Receive Date: 20061220
  Receipt Date: 20061204
  Transmission Date: 20070319
  Serious: Yes (Hospitalization)
  Sender: FDA-Public Use
  Company Number: 2006EU003231

PATIENT
  Age: 60 Year
  Sex: Male
  Weight: 74 kg

DRUGS (10)
  1. PROGRAF [Suspect]
     Indication: RENAL TRANSPLANT
     Dosage: 7 MG, D, ORAL; 3 MG, /D, ORAL
     Route: 048
     Dates: start: 20010717
  2. VANCOMYCIN [Suspect]
     Dosage: 1 MG, D, IV NOS
     Route: 042
     Dates: start: 20060821, end: 20060824
  3. PYOSTACINE            (PRISTINAMYCIN) [Suspect]
     Dosage: 3 MG, D, ORAL
     Route: 048
     Dates: start: 20060824, end: 20060901
  4. IMODIUM [Suspect]
     Dosage: 2 MG, D, ORAL
     Route: 048
  5. TAZOCILLINE              (PIPERACILLIN SODIUM, TAZOBACTAM SODIUM) [Suspect]
     Dosage: 12 MG, D, IV NOS
     Route: 042
     Dates: start: 20060821, end: 20060824
  6. PANTOPRAZOLE SODIUM [Suspect]
     Dosage: 40MG, D, ORAL
     Route: 048
  7. IMOVANE [Concomitant]
  8. SOLU-PRED          (METHYLPREDNISOLONE) [Concomitant]
  9. CREON (LIPASE) [Concomitant]
  10. PAREGORIC (GLYCEROL, ETHANOL, PAPAVER SOMNIFERUM LATEX, ILLICIUM VERUM [Concomitant]

REACTIONS (6)
  - DEHYDRATION [None]
  - DRUG INTERACTION [None]
  - GASTROINTESTINAL DISORDER [None]
  - RENAL FAILURE ACUTE [None]
  - SEPSIS [None]
  - STAPHYLOCOCCAL INFECTION [None]
